FAERS Safety Report 9213443 (Version 2)
Quarter: 2013Q2

REPORT INFORMATION
  Report Type: Report from Study
  Country: AU (occurrence: AU)
  Receive Date: 20130405
  Receipt Date: 20130417
  Transmission Date: 20140414
  Serious: Yes (Death, Other)
  Sender: FDA-Public Use
  Company Number: PHHY2013AU032807

PATIENT
  Age: 93 Year
  Sex: Female
  Weight: 45 kg

DRUGS (5)
  1. ACLASTA [Suspect]
     Indication: OSTEOPOROSIS
     Dosage: 5 MG
     Route: 042
     Dates: start: 20090701
  2. ACLASTA [Suspect]
     Dosage: 5 MG
     Route: 042
     Dates: start: 20100823
  3. ACLASTA [Suspect]
     Dosage: 5 MG
     Route: 042
     Dates: start: 20111205
  4. MORPHINE [Concomitant]
     Dosage: 10 MG OVER 24 HOURS
     Route: 042
     Dates: start: 20130123
  5. MIDAZOLAM [Concomitant]
     Dosage: 2.5 MG OVER 24 HOURS
     Route: 042
     Dates: start: 20130122

REACTIONS (6)
  - Rheumatoid arthritis [Fatal]
  - Chronic obstructive pulmonary disease [Fatal]
  - Loss of consciousness [Unknown]
  - Circulatory collapse [Unknown]
  - Blood calcium increased [Unknown]
  - Blood sodium decreased [Unknown]
